FAERS Safety Report 6600724-1 (Version None)
Quarter: 2010Q1

REPORT INFORMATION
  Report Type: 
  Country: None (occurrence: None)
  Receive Date: 20100223
  Receipt Date: 20100223
  Transmission Date: 20100710
  Serious: Yes (Other)
  Sender: FDA-Public Use
  Company Number: None

PATIENT
  Sex: Female
  Weight: 98.4306 kg

DRUGS (1)
  1. SAPHRIS [Suspect]
     Indication: BIPOLAR I DISORDER
     Dosage: 10MG QHS BUCCAL
     Route: 002
     Dates: start: 20100205, end: 20100207

REACTIONS (4)
  - GLOSSODYNIA [None]
  - MOUTH HAEMORRHAGE [None]
  - MUCOSAL EXCORIATION [None]
  - TONGUE BLISTERING [None]
